FAERS Safety Report 11030369 (Version 2)
Quarter: 2015Q3

REPORT INFORMATION
  Report Type: Spontaneous
  Country: US (occurrence: US)
  Receive Date: 20150415
  Receipt Date: 20150722
  Transmission Date: 20151125
  Serious: Yes (Other)
  Sender: FDA-Public Use
  Company Number: US-ASTRAZENECA-2015SE32955

PATIENT
  Age: 9120 Day
  Sex: Male
  Weight: 94.8 kg

DRUGS (9)
  1. ACTOS [Concomitant]
     Active Substance: PIOGLITAZONE HYDROCHLORIDE
     Indication: TYPE 2 DIABETES MELLITUS
     Route: 048
     Dates: start: 201503
  2. VITAMIN C [Concomitant]
     Active Substance: ASCORBIC ACID
     Dosage: DAILY
  3. BABY ASPIRIN [Concomitant]
     Active Substance: ASPIRIN
     Dosage: DAILY
  4. EPLERENONE. [Concomitant]
     Active Substance: EPLERENONE
  5. VALSARTAN. [Concomitant]
     Active Substance: VALSARTAN
  6. VITAMIN D [Concomitant]
     Active Substance: CHOLECALCIFEROL
     Dosage: DAILY
  7. SIMVASTATIN. [Concomitant]
     Active Substance: SIMVASTATIN
  8. BYDUREON [Suspect]
     Active Substance: EXENATIDE
     Indication: DIABETES MELLITUS
     Dosage: 2 MG
     Route: 058
     Dates: start: 201503, end: 20150406
  9. FISH OIL [Concomitant]
     Active Substance: FISH OIL
     Dosage: DAILY

REACTIONS (6)
  - Injection site mass [Recovered/Resolved]
  - Injection site pruritus [Recovered/Resolved]
  - Skin warm [Unknown]
  - Injection site warmth [Recovered/Resolved]
  - Nausea [Recovered/Resolved]
  - Injection site erythema [Unknown]

NARRATIVE: CASE EVENT DATE: 20150406
